FAERS Safety Report 9742122 (Version 2)
Quarter: 2014Q1

REPORT INFORMATION
  Report Type: Spontaneous
  Country: KR (occurrence: KR)
  Receive Date: 20131210
  Receipt Date: 20140131
  Transmission Date: 20141002
  Serious: Yes (Hospitalization)
  Sender: FDA-Public Use
  Company Number: KR-JNJFOC-20131203164

PATIENT
  Age: 27 Year
  Sex: Male

DRUGS (4)
  1. INFLIXIMAB, RECOMBINANT [Suspect]
     Indication: CROHN^S DISEASE
     Dosage: THE PATIENT HAD RECEIVED 6 TIMES FOR EIGHT MONTHS
     Route: 042
  2. PREDNISOLONE [Suspect]
     Indication: ILEAL FISTULA
     Route: 065
     Dates: start: 2011
  3. MESALAZINE [Suspect]
     Indication: ILEAL FISTULA
     Route: 065
     Dates: start: 2011
  4. TRAMADOL [Suspect]
     Indication: PRODUCT USED FOR UNKNOWN INDICATION
     Route: 065

REACTIONS (3)
  - Ileal perforation [Recovering/Resolving]
  - Autoimmune hepatitis [Recovering/Resolving]
  - Large intestinal ulcer haemorrhage [Recovering/Resolving]
